FAERS Safety Report 4596540-5 (Version None)
Quarter: 2005Q1

REPORT INFORMATION
  Report Type: 
  Country: None (occurrence: None)
  Receive Date: 20050228
  Receipt Date: 20040301
  Transmission Date: 20050727
  Serious: Yes (Other)
  Sender: FDA-Public Use
  Company Number: 7556

PATIENT
  Sex: Female

DRUGS (2)
  1. METHOTREXATE [Suspect]
     Indication: ARTHRITIS
  2. ENBREL [Suspect]
     Indication: ARTHRITIS

REACTIONS (2)
  - DRUG INEFFECTIVE [None]
  - LIVER DISORDER [None]
